FAERS Safety Report 9818474 (Version 1)
Quarter: 2014Q1

REPORT INFORMATION
  Report Type: Spontaneous
  Country: US (occurrence: US)
  Receive Date: 20140115
  Receipt Date: 20140115
  Transmission Date: 20141002
  Serious: No
  Sender: FDA-Public Use
  Company Number: US-PFIZER INC-2014011689

PATIENT
  Age: 53 Year
  Sex: Female
  Weight: 104.31 kg

DRUGS (2)
  1. LYRICA [Suspect]
     Indication: FIBROMYALGIA
     Dosage: 300 MG, 1X/DAY (IN THE MORNING)
     Route: 048
     Dates: end: 20131207
  2. LASIX [Concomitant]
     Dosage: UNK

REACTIONS (2)
  - Feeling abnormal [Recovered/Resolved]
  - Pain [Recovered/Resolved]
